FAERS Safety Report 20806165 (Version 1)
Quarter: 2022Q2

REPORT INFORMATION
  Report Type: Spontaneous
  Country: US (occurrence: US)
  Receive Date: 20220510
  Receipt Date: 20220510
  Transmission Date: 20220721
  Serious: No
  Sender: FDA-Public Use
  Company Number: US-ALLERGAN-2208469US

PATIENT
  Age: 51 Year
  Sex: Female

DRUGS (1)
  1. VUITY [Suspect]
     Active Substance: PILOCARPINE HYDROCHLORIDE
     Indication: Product used for unknown indication
     Dosage: 2 GTT, QD
     Dates: end: 20220308

REACTIONS (3)
  - Visual impairment [Recovered/Resolved]
  - Headache [Recovered/Resolved]
  - Therapeutic response decreased [Unknown]
